FAERS Safety Report 23988659 (Version 2)
Quarter: 2024Q2

REPORT INFORMATION
  Report Type: Report from Study
  Country: GB (occurrence: ES)
  Receive Date: 20240619
  Receipt Date: 20240628
  Transmission Date: 20240716
  Serious: Yes (Other)
  Sender: FDA-Public Use
  Company Number: GB-TAKEDA-2024TUS047381

PATIENT
  Sex: Male

DRUGS (1)
  1. FRUQUINTINIB [Suspect]
     Active Substance: FRUQUINTINIB
     Indication: Product used for unknown indication
     Dosage: UNK
     Route: 065
     Dates: end: 20240507

REACTIONS (3)
  - Metastases to liver [Unknown]
  - Metastases to lymph nodes [Unknown]
  - Goitre [Unknown]
